FAERS Safety Report 8845961 (Version 1)
Quarter: 2012Q4

REPORT INFORMATION
  Report Type: 
  Country: US (occurrence: US)
  Receive Date: 20121017
  Receipt Date: 20121017
  Transmission Date: 20130627
  Serious: Yes (Hospitalization)
  Sender: FDA-Public Use
  Company Number: US-UCBSA-068797

PATIENT
  Age: 20 Year
  Sex: Female

DRUGS (6)
  1. VIMPAT [Suspect]
     Indication: CONVULSION
  2. KEPPRA [Suspect]
     Indication: CONVULSION
  3. DILANTIN [Concomitant]
     Dosage: TABLET OR CAPSULE FORM
  4. DILANTIN [Concomitant]
     Dosage: LIQUID FORM
  5. DEPAKOTE [Concomitant]
     Dosage: TABLET OR CAPSULE FORM
  6. DEPAKOTE [Concomitant]
     Dosage: LIQUID FORM

REACTIONS (2)
  - Epilepsy [Recovered/Resolved]
  - Dysphagia [Unknown]
